FAERS Safety Report 17766748 (Version 1)
Quarter: 2020Q2

REPORT INFORMATION
  Report Type: Spontaneous
  Country: CA (occurrence: CA)
  Receive Date: 20200511
  Receipt Date: 20200511
  Transmission Date: 20200714
  Serious: Yes (Hospitalization)
  Sender: FDA-Public Use
  Company Number: CA-TEVA-2020-CA-1233220

PATIENT
  Age: 65 Year
  Sex: Female

DRUGS (1)
  1. METOPROLOL FILMCOATED 50MG TABLET [Suspect]
     Active Substance: METOPROLOL
     Route: 065

REACTIONS (1)
  - Tachycardia [Recovered/Resolved]
